FAERS Safety Report 16382583 (Version 2)
Quarter: 2019Q3

REPORT INFORMATION
  Report Type: Spontaneous
  Country: US (occurrence: US)
  Receive Date: 20190603
  Receipt Date: 20190905
  Transmission Date: 20191004
  Serious: Yes (Other)
  Sender: FDA-Public Use
  Company Number: US-ASTRAZENECA-2018SF26187

PATIENT
  Age: 26514 Day
  Sex: Female

DRUGS (50)
  1. PRILOSEC [Suspect]
     Active Substance: OMEPRAZOLE MAGNESIUM
     Route: 048
     Dates: start: 2002, end: 2016
  2. PROTONIX [Suspect]
     Active Substance: PANTOPRAZOLE SODIUM
     Dosage: GENERIC
     Route: 065
     Dates: start: 20131201
  3. HYDROCODONE BITARTRATE AND ACETAMINOPHEN [Concomitant]
     Active Substance: ACETAMINOPHEN\HYDROCODONE BITARTRATE
  4. RANITIDINE. [Concomitant]
     Active Substance: RANITIDINE
  5. DUREZOL [Concomitant]
     Active Substance: DIFLUPREDNATE
  6. DOXYCYCLINE. [Concomitant]
     Active Substance: DOXYCYCLINE
  7. OMEGA 3 [Concomitant]
     Active Substance: OMEGA-3 FATTY ACIDS
  8. FLEXERIL [Concomitant]
     Active Substance: CYCLOBENZAPRINE HYDROCHLORIDE
  9. FISH OIL [Concomitant]
     Active Substance: FISH OIL
  10. PREVACID [Suspect]
     Active Substance: LANSOPRAZOLE
     Route: 065
     Dates: start: 2002, end: 2016
  11. FLUCONAZOLE. [Concomitant]
     Active Substance: FLUCONAZOLE
  12. CEFUROXIME. [Concomitant]
     Active Substance: CEFUROXIME
  13. RABEPRAZOLE [Concomitant]
     Active Substance: RABEPRAZOLE
  14. METHYLPREDNISOLONE. [Concomitant]
     Active Substance: METHYLPREDNISOLONE
  15. MINOCYCLINE [Concomitant]
     Active Substance: MINOCYCLINE HYDROCHLORIDE
  16. PROAIR HFA [Concomitant]
     Active Substance: ALBUTEROL SULFATE
  17. CYCLOBENZAPRINE. [Concomitant]
     Active Substance: CYCLOBENZAPRINE
  18. SUCRALFATE. [Concomitant]
     Active Substance: SUCRALFATE
  19. VITAMIN D [Concomitant]
     Active Substance: VITAMIN D NOS
  20. NEXIUM [Suspect]
     Active Substance: ESOMEPRAZOLE MAGNESIUM
     Route: 048
     Dates: start: 2002, end: 2016
  21. GABAPENTIN. [Concomitant]
     Active Substance: GABAPENTIN
  22. ZANTAC [Concomitant]
     Active Substance: RANITIDINE HYDROCHLORIDE
  23. EVENING PRIMROSE [Concomitant]
  24. FUROSEMIDE. [Concomitant]
     Active Substance: FUROSEMIDE
  25. CIPROFLOXACIN. [Concomitant]
     Active Substance: CIPROFLOXACIN
  26. TRAMADOL. [Concomitant]
     Active Substance: TRAMADOL
  27. AMLODIPINE [Concomitant]
     Active Substance: AMLODIPINE BESYLATE
  28. LEVOFLOXACIN. [Concomitant]
     Active Substance: LEVOFLOXACIN
  29. ONDANSETRON [Concomitant]
     Active Substance: ONDANSETRON
  30. METOCLOPRAMIDE. [Concomitant]
     Active Substance: METOCLOPRAMIDE
  31. CYCLOBENZAPRINE. [Concomitant]
     Active Substance: CYCLOBENZAPRINE
  32. NITROFURANTOIN. [Concomitant]
     Active Substance: NITROFURANTOIN
  33. COLCHICINE. [Concomitant]
     Active Substance: COLCHICINE
  34. CALCITRIOL. [Concomitant]
     Active Substance: CALCITRIOL
  35. CREON [Concomitant]
     Active Substance: PANCRELIPASE AMYLASE\PANCRELIPASE LIPASE\PANCRELIPASE PROTEASE
  36. GEMFIBROZIL. [Concomitant]
     Active Substance: GEMFIBROZIL
  37. ASPIRIN. [Concomitant]
     Active Substance: ASPIRIN
  38. ADVAIR HFA [Concomitant]
     Active Substance: FLUTICASONE PROPIONATE\SALMETEROL XINAFOATE
  39. CITALOPRAM [Concomitant]
     Active Substance: CITALOPRAM HYDROBROMIDE
  40. ALPRAZOLAM. [Concomitant]
     Active Substance: ALPRAZOLAM
  41. METRONIDAZOLE. [Concomitant]
     Active Substance: METRONIDAZOLE
  42. DOXYCYCLINE. [Concomitant]
     Active Substance: DOXYCYCLINE
  43. CEFUROXIME. [Concomitant]
     Active Substance: CEFUROXIME
  44. PROTONIX [Suspect]
     Active Substance: PANTOPRAZOLE SODIUM
     Route: 065
     Dates: start: 2002, end: 2016
  45. GABAPENTIN. [Concomitant]
     Active Substance: GABAPENTIN
  46. MAGNESIUM OXIDE. [Concomitant]
     Active Substance: MAGNESIUM OXIDE
  47. AMOXICILLINE [Concomitant]
     Active Substance: AMOXICILLIN
  48. ATENOLOL. [Concomitant]
     Active Substance: ATENOLOL
  49. CARAFATE [Concomitant]
     Active Substance: SUCRALFATE
  50. FENOFIBRATE. [Concomitant]
     Active Substance: FENOFIBRATE

REACTIONS (3)
  - Renal failure [Unknown]
  - Chronic kidney disease [Unknown]
  - Acute kidney injury [Unknown]

NARRATIVE: CASE EVENT DATE: 20151116
